FAERS Safety Report 7028661-1 (Version None)
Quarter: 2010Q4

REPORT INFORMATION
  Report Type: 
  Country: None (occurrence: None)
  Receive Date: 20101005
  Receipt Date: 20101001
  Transmission Date: 20110411
  Serious: Yes (Life-Threatening, Hospitalization)
  Sender: FDA-Public Use
  Company Number: DE-NAPPMUNDI-DEU-2010-0006599

PATIENT
  Age: 8 Month
  Sex: Female
  Weight: 10 kg

DRUGS (1)
  1. PALLADON RETARD 16 MG [Suspect]
     Indication: ACCIDENTAL DRUG INTAKE BY CHILD
     Dosage: 16 MG, SINGLE
     Route: 048
     Dates: start: 20100929

REACTIONS (3)
  - ACCIDENTAL DRUG INTAKE BY CHILD [None]
  - FATIGUE [None]
  - HYPOTONIA [None]
